FAERS Safety Report 9250248 (Version 3)
Quarter: 2013Q3

REPORT INFORMATION
  Report Type: Spontaneous
  Country: US (occurrence: US)
  Receive Date: 20130424
  Receipt Date: 20130930
  Transmission Date: 20140515
  Serious: Yes (Disabling)
  Sender: FDA-Public Use
  Company Number: US-ASTRAZENECA-2013SE27337

PATIENT
  Age: 44 Year
  Sex: Female

DRUGS (19)
  1. NEXIUM [Suspect]
     Indication: GASTROOESOPHAGEAL REFLUX DISEASE
     Dosage: 2 TIMES
     Route: 048
  2. NEXIUM [Suspect]
     Indication: DYSPEPSIA
     Dosage: 2 TIMES
     Route: 048
  3. NEXIUM [Suspect]
     Indication: FLATULENCE
     Dosage: 2 TIMES
     Route: 048
  4. NEXIUM [Suspect]
     Indication: GASTROOESOPHAGEAL REFLUX DISEASE
     Route: 048
     Dates: start: 200502, end: 200506
  5. NEXIUM [Suspect]
     Indication: DYSPEPSIA
     Route: 048
     Dates: start: 200502, end: 200506
  6. NEXIUM [Suspect]
     Indication: FLATULENCE
     Route: 048
     Dates: start: 200502, end: 200506
  7. NEXIUM [Suspect]
     Indication: GASTROOESOPHAGEAL REFLUX DISEASE
     Route: 048
     Dates: start: 20050228
  8. NEXIUM [Suspect]
     Indication: DYSPEPSIA
     Route: 048
     Dates: start: 20050228
  9. NEXIUM [Suspect]
     Indication: FLATULENCE
     Route: 048
     Dates: start: 20050228
  10. PREVACID [Suspect]
     Indication: GASTROOESOPHAGEAL REFLUX DISEASE
     Dosage: TWO TIMES A DAY
     Route: 065
     Dates: start: 2006, end: 2007
  11. PREVACID [Suspect]
     Indication: DYSPEPSIA
     Dosage: TWO TIMES A DAY
     Route: 065
     Dates: start: 2006, end: 2007
  12. PREVACID [Suspect]
     Indication: FLATULENCE
     Dosage: TWO TIMES A DAY
     Route: 065
     Dates: start: 2006, end: 2007
  13. CLONIDINE HCL [Concomitant]
     Indication: HORMONE REPLACEMENT THERAPY
     Dosage: THREE TIMES A DAY, ONLY TOOK FOR TWO WEEKS
  14. CLEMASTINE [Concomitant]
     Route: 048
     Dates: start: 19980310
  15. SULFAMETHOXAZOLE [Concomitant]
     Route: 048
     Dates: start: 19980619
  16. GEODON [Concomitant]
     Route: 048
     Dates: start: 20040402
  17. PREMARIN [Concomitant]
     Route: 048
     Dates: start: 20050913
  18. SEROQUEL [Concomitant]
     Route: 048
     Dates: start: 20060607
  19. FOLIC ACID [Concomitant]
     Dosage: 1 MG TO TAKE ALONG WITH SHOT MEDICINE

REACTIONS (10)
  - Malaise [Unknown]
  - Arthritis [Unknown]
  - Osteoporosis [Unknown]
  - Multiple fractures [Unknown]
  - Rheumatoid arthritis [Unknown]
  - Osteopenia [Unknown]
  - Joint swelling [Unknown]
  - Bone loss [Unknown]
  - Bone disorder [Unknown]
  - Arthralgia [Unknown]
